FAERS Safety Report 5456092-4 (Version None)
Quarter: 2007Q3

REPORT INFORMATION
  Report Type: 
  Country: None (occurrence: None)
  Receive Date: 20070918
  Receipt Date: 20070228
  Transmission Date: 20080115
  Serious: Yes (Other)
  Sender: FDA-Public Use
  Company Number: US-ASTRAZENECA-2006UW24111

PATIENT
  Sex: Female
  Weight: 118.2 kg

DRUGS (7)
  1. SEROQUEL [Suspect]
     Indication: ILL-DEFINED DISORDER
     Route: 048
     Dates: start: 20010601
  2. SEROQUEL [Suspect]
     Route: 048
     Dates: start: 20030101, end: 20030901
  3. ABILIFY [Suspect]
  4. RISPERDAL [Suspect]
  5. ZYPREXA [Suspect]
  6. GEODON [Concomitant]
  7. TRILAFON [Concomitant]

REACTIONS (4)
  - DIABETES MELLITUS [None]
  - KETOACIDOSIS [None]
  - SYNCOPE [None]
  - TARDIVE DYSKINESIA [None]
